FAERS Safety Report 24121904 (Version 1)
Quarter: 2024Q3

REPORT INFORMATION
  Report Type: Spontaneous
  Country: US (occurrence: US)
  Receive Date: 20240722
  Receipt Date: 20240722
  Transmission Date: 20241016
  Serious: No
  Sender: SANOFI AVENTIS
  Company Number: US-SA-SAC20240718000168

PATIENT
  Sex: Male

DRUGS (5)
  1. DUPIXENT [Suspect]
     Active Substance: DUPILUMAB
     Indication: Dermatitis atopic
     Dosage: 300 MG, QOW
     Route: 058
     Dates: start: 20221019
  2. ACYCLOVIR [Concomitant]
     Active Substance: ACYCLOVIR
  3. FAMOTIDINE [Concomitant]
     Active Substance: FAMOTIDINE
  4. LOSARTAN POTASSIUM [Concomitant]
     Active Substance: LOSARTAN POTASSIUM
  5. OMNIPAQUE [Concomitant]
     Active Substance: IOHEXOL

REACTIONS (2)
  - Product dose omission in error [Unknown]
  - Drug ineffective [Unknown]
